FAERS Safety Report 9828649 (Version 1)
Quarter: 2013Q4

REPORT INFORMATION
  Report Type: Spontaneous
  Country: US (occurrence: None)
  Receive Date: 20131120
  Receipt Date: 20131120
  Transmission Date: 20140711
  Serious: Yes (Other)
  Sender: FDA-Public Use
  Company Number: 1000048450

PATIENT
  Age: 54 Year
  Sex: Female

DRUGS (13)
  1. VIIBRYD [Suspect]
     Route: 048
     Dates: start: 20130903
  2. FUROSEMIDE (FUROSEMIDE) (FUROSEMIDE) [Concomitant]
  3. XANAX (ALPRAZOLAM) (ALPRAZOLAM_ [Concomitant]
  4. METFORMIN (METFORMIN) [Concomitant]
  5. ASPIRIN (ACETYLSALICYLIC ACID) (ACETYLSALICYLIC ACID) [Concomitant]
  6. CLONIDINE (CLONIDINE) (CLONIDINE) [Concomitant]
  7. COZAAR (LOSARTAN POTASSIUM) (LOSARTAN POTASSIUM) [Concomitant]
  8. NEURONTIN (GABAPENTIN) (GABA[EMTOM_ [Concomitant]
  9. ZOCOR (SIMVASTATIN) (SIMVASTATIN) [Concomitant]
  10. FOLIC ACID (FOLIC ACID) (FOLIC ACID) [Concomitant]
  11. VITAMIN B-12 (CYANOCOBALAMIN) (CYANOCOBALAMIN) [Concomitant]
  12. VITAMIN D3 (COLECALCIFEROL) (COLECALCIFEROL) [Concomitant]
  13. POTASSIUM CITRATE (POTASSIUM CITRATE) (POTASSIUM CITRATE) [Concomitant]

REACTIONS (2)
  - Nausea [None]
  - Headache [None]
